FAERS Safety Report 21479762 (Version 1)
Quarter: 2022Q4

REPORT INFORMATION
  Report Type: Spontaneous
  Country: GB (occurrence: None)
  Receive Date: 20221019
  Receipt Date: 20221019
  Transmission Date: 20230113
  Serious: Yes (Life-Threatening)
  Sender: FDA-Public Use
  Company Number: 2022A347294

PATIENT
  Age: 89 Year
  Sex: Female
  Weight: 64 kg

DRUGS (14)
  1. DAPAGLIFLOZIN [Suspect]
     Active Substance: DAPAGLIFLOZIN
     Dosage: 10
     Route: 065
     Dates: start: 20221005
  2. CALCIUM CARBONATE\CHOLECALCIFEROL [Concomitant]
     Active Substance: CALCIUM CARBONATE\CHOLECALCIFEROL
     Dosage: 1, TAKE ONE TABLET TWICE A DAY (TABLETS CAN BREAK ...
     Dates: start: 20220118
  3. AMLODIPINE [Concomitant]
     Active Substance: AMLODIPINE BESYLATE
     Dosage: 1, TAKE ONE DAILY
     Dates: start: 20210202
  4. APIXABAN [Concomitant]
     Active Substance: APIXABAN
     Dosage: 1, THIS IS AN ANTICO...
     Dates: start: 20211126
  5. CO-AMILOFRUSE [Concomitant]
     Active Substance: AMILORIDE\FUROSEMIDE
     Dosage: 1
     Dates: start: 20210716
  6. DAPAGLIFLOZIN [Concomitant]
     Active Substance: DAPAGLIFLOZIN
     Dosage: 1, FOR TREATING HEART F...
     Dates: start: 20220907
  7. DIGOXIN [Concomitant]
     Active Substance: DIGOXIN
     Dosage: 1
     Dates: start: 20220209
  8. FENBID [Concomitant]
     Dosage: LIGHTLY RUB INTO THE AFFECTED AREA UNTIL ABSORB...
     Dates: start: 20220823
  9. NITROGLYCERIN [Concomitant]
     Active Substance: NITROGLYCERIN
     Dosage: 1, DISSOLVE ONE TABLET UNDER THE TONGUE AS NEEDED ...
     Dates: start: 20210202
  10. HYDROXOCOBALAMIN [Concomitant]
     Active Substance: HYDROXOCOBALAMIN
     Dosage: 1
     Route: 030
     Dates: start: 20191029
  11. ISOSORBIDE MONONITRATE [Concomitant]
     Active Substance: ISOSORBIDE MONONITRATE
     Dosage: 2
     Dates: start: 20210202
  12. LANSOPRAZOLE [Concomitant]
     Active Substance: LANSOPRAZOLE
     Dosage: 1, (THIS IS INSTEAD OF YOUR US... 1
     Dates: start: 20191211
  13. NICORANDIL [Concomitant]
     Active Substance: NICORANDIL
     Dosage: 1.5
     Dates: start: 20210202
  14. ACETAMINOPHEN [Concomitant]
     Active Substance: ACETAMINOPHEN
     Dosage: TAKE 1 OR 2
     Dates: start: 20210407

REACTIONS (1)
  - Mouth swelling [Recovered/Resolved]

NARRATIVE: CASE EVENT DATE: 20221005
